FAERS Safety Report 7039215-5 (Version None)
Quarter: 2010Q4

REPORT INFORMATION
  Report Type: 
  Country: None (occurrence: None)
  Receive Date: 20101012
  Receipt Date: 20100930
  Transmission Date: 20110411
  Serious: Yes (Death, Other)
  Sender: FDA-Public Use
  Company Number: ES-CELGENEUS-144-50794-10100183

PATIENT
  Age: 78 Year
  Sex: Male

DRUGS (8)
  1. VIDAZA [Suspect]
     Route: 058
     Dates: start: 20080601, end: 20080601
  2. VIDAZA [Suspect]
     Route: 058
     Dates: start: 20080701, end: 20090501
  3. VIDAZA [Suspect]
     Route: 058
     Dates: start: 20090601, end: 20090801
  4. ANTICOAGULANT [Concomitant]
     Route: 065
  5. ASPIRIN [Concomitant]
     Route: 065
  6. RED BLOOD CELLS [Concomitant]
     Indication: PRODUCT USED FOR UNKNOWN INDICATION
     Route: 065
  7. PLATELETS [Concomitant]
     Indication: PRODUCT USED FOR UNKNOWN INDICATION
     Route: 065
  8. ONDANSETRON [Concomitant]
     Indication: ANTIEMETIC SUPPORTIVE CARE
     Route: 048

REACTIONS (4)
  - ACUTE MYELOID LEUKAEMIA RECURRENT [None]
  - DEATH [None]
  - FEBRILE NEUTROPENIA [None]
  - PNEUMONIA PNEUMOCOCCAL [None]
